FAERS Safety Report 20891974 (Version 1)
Quarter: 2022Q2

REPORT INFORMATION
  Report Type: Spontaneous
  Country: BY (occurrence: BY)
  Receive Date: 20220530
  Receipt Date: 20220530
  Transmission Date: 20220721
  Serious: Yes (Death, Other)
  Sender: FDA-Public Use
  Company Number: BY-NOVARTISPH-NVSC2022BY123438

PATIENT
  Age: 65 Year
  Sex: Female

DRUGS (4)
  1. METHOTREXATE [Suspect]
     Active Substance: METHOTREXATE
     Indication: Pustular psoriasis
     Dosage: 15 MG, QW (5 MG IN THURSDAY MORNING, THURSDAY EVENING AND FRIDAY MORNING)
     Route: 065
     Dates: start: 20171010
  2. METHOTREXATE [Suspect]
     Active Substance: METHOTREXATE
     Dosage: 30 MG, QW
     Route: 065
     Dates: end: 20191102
  3. KETOTIFEN [Concomitant]
     Active Substance: KETOTIFEN
     Indication: Product used for unknown indication
     Dosage: UNK
     Route: 065
  4. FOLIC ACID [Concomitant]
     Active Substance: FOLIC ACID
     Indication: Product used for unknown indication
     Dosage: EPISODICALLY
     Route: 065

REACTIONS (16)
  - Gastric ulcer [Fatal]
  - Haemorrhage [Fatal]
  - Pancytopenia [Fatal]
  - Anaemia [Fatal]
  - Oesophagitis haemorrhagic [Fatal]
  - Erosive oesophagitis [Fatal]
  - Multiple organ dysfunction syndrome [Unknown]
  - Psoriasis [Unknown]
  - Skin plaque [Unknown]
  - Rash [Unknown]
  - Blood urea increased [Unknown]
  - Blood creatinine increased [Unknown]
  - Blood bilirubin increased [Unknown]
  - Activated partial thromboplastin time shortened [Unknown]
  - International normalised ratio increased [Unknown]
  - Intentional product use issue [Unknown]

NARRATIVE: CASE EVENT DATE: 20191105
